FAERS Safety Report 8949265 (Version 2)
Quarter: 2012Q4

REPORT INFORMATION
  Report Type: 
  Country: US (occurrence: US)
  Receive Date: 20121121
  Receipt Date: 20121212
  Transmission Date: 20130627
  Serious: Yes (Death)
  Sender: FDA-Public Use
  Company Number: US-ASTELLAS-1117748

PATIENT
  Sex: Female

DRUGS (2)
  1. TARCEVA [Suspect]
     Indication: NEOPLASM MALIGNANT
     Route: 048
     Dates: start: 20111006
  2. TARCEVA [Suspect]
     Indication: METASTATIC NEOPLASM

REACTIONS (1)
  - Metastatic neoplasm [Fatal]
